FAERS Safety Report 4533351-0 (Version None)
Quarter: 2004Q4

REPORT INFORMATION
  Report Type: 
  Country: None (occurrence: None)
  Receive Date: 20041220
  Receipt Date: 20041220
  Transmission Date: 20050328
  Serious: Yes (Hospitalization, Other)
  Sender: FDA-Public Use
  Company Number: None

PATIENT
  Age: 45 Year
  Sex: Female

DRUGS (6)
  1. CORRECTOL [Suspect]
     Indication: CONSTIPATION
     Dosage: UNKNOWN ORAL
     Route: 048
  2. FEEN-A-MINT [Suspect]
     Indication: CONSTIPATION
  3. EX-LAX [Suspect]
     Indication: CONSTIPATION
  4. ALPRAZOLAM [Concomitant]
  5. ENALAPRIL [Concomitant]
  6. NADOLOL [Concomitant]

REACTIONS (19)
  - ABDOMINAL PAIN [None]
  - ANAEMIA [None]
  - ANOREXIA [None]
  - CARDIOMEGALY [None]
  - CHOLELITHIASIS [None]
  - COLD SWEAT [None]
  - COLON CANCER [None]
  - COLON CANCER METASTATIC [None]
  - CONSTIPATION [None]
  - DRUG DEPENDENCE [None]
  - ELECTROLYTE IMBALANCE [None]
  - HELICOBACTER INFECTION [None]
  - HEPATIC CANCER METASTATIC [None]
  - HERNIA [None]
  - INTESTINAL OBSTRUCTION [None]
  - MELANOSIS COLI [None]
  - POSTOPERATIVE ADHESION [None]
  - RENAL FAILURE ACUTE [None]
  - VOMITING [None]
